FAERS Safety Report 5099356-9 (Version None)
Quarter: 2006Q3

REPORT INFORMATION
  Report Type: 
  Country: None (occurrence: None)
  Receive Date: 20060728
  Receipt Date: 20050919
  Transmission Date: 20061208
  Serious: Yes (Other)
  Sender: FDA-Public Use
  Company Number: US-JNJFOC-20050905242

PATIENT
  Age: 22 Month
  Sex: Female
  Weight: 10.8863 kg

DRUGS (1)
  1. CHILDREN'S MOTRIN [Suspect]
     Indication: TEETHING
     Dosage: 100 MG, 1 IN 1 DAY, ORAL
     Route: 048
     Dates: start: 20050918, end: 20050919

REACTIONS (1)
  - HYPERSENSITIVITY [None]
